FAERS Safety Report 26119848 (Version 1)
Quarter: 2025Q4

REPORT INFORMATION
  Report Type: Spontaneous
  Country: US (occurrence: US)
  Receive Date: 20251204
  Receipt Date: 20251204
  Transmission Date: 20260119
  Serious: Yes (Hospitalization)
  Sender: CATALYST PHARMA
  Company Number: US-CATALYST PHARMACEUTICALS, INC-US-CATA-25-01869

PATIENT
  Age: 74 Year
  Sex: Male
  Weight: 66.667 kg

DRUGS (16)
  1. FIRDAPSE [Suspect]
     Active Substance: AMIFAMPRIDINE PHOSPHATE
     Indication: Myasthenic syndrome
     Dosage: 1.5 TABLETS 3 TIMES PER DAY
     Route: 048
     Dates: start: 20251113, end: 202511
  2. FIRDAPSE [Suspect]
     Active Substance: AMIFAMPRIDINE PHOSPHATE
     Dosage: 2 TABLETS TWICE A DAY
     Route: 048
     Dates: start: 202511
  3. NEXIUM [Concomitant]
     Active Substance: ESOMEPRAZOLE MAGNESIUM
     Indication: Gastrooesophageal reflux disease
     Dosage: 20 MG
     Route: 065
  4. HYDROCORTISONE [Concomitant]
     Active Substance: HYDROCORTISONE
     Indication: Inflammation
     Dosage: 15 MG IN AM AND 5 MG PM
     Route: 065
  5. IBUPROFEN [Concomitant]
     Active Substance: IBUPROFEN
     Indication: Pain
     Dosage: 600 MG AS NEEDED
     Route: 065
  6. MAGNESIUM [Concomitant]
     Active Substance: MAGNESIUM
     Indication: Supplementation therapy
     Dosage: 400 MG DAILY
     Route: 065
  7. MELATONIN [Concomitant]
     Active Substance: MELATONIN
     Indication: Insomnia
     Dosage: 10 MG
     Route: 065
  8. OLANZAPINE [Concomitant]
     Active Substance: OLANZAPINE
     Indication: Depression
     Dosage: 5 MG
     Route: 065
  9. OXYCODONE [Concomitant]
     Active Substance: OXYCODONE
     Indication: Pain
     Dosage: 5 MG
     Route: 065
  10. CIALIS [Concomitant]
     Active Substance: TADALAFIL
     Indication: Benign prostatic hyperplasia
     Dosage: 10 MG
     Route: 065
  11. CIALIS [Concomitant]
     Active Substance: TADALAFIL
     Indication: Urinary tract disorder
  12. FLOMAX [Concomitant]
     Active Substance: TAMSULOSIN HYDROCHLORIDE
     Indication: Benign prostatic hyperplasia
     Dosage: 0.4 MG
     Route: 065
  13. FLOMAX [Concomitant]
     Active Substance: TAMSULOSIN HYDROCHLORIDE
     Indication: Urinary tract disorder
  14. HUMAN IMMUNOGLOBULIN G [Concomitant]
     Active Substance: HUMAN IMMUNOGLOBULIN G
     Indication: Myasthenic syndrome
     Dosage: DAILY
     Route: 042
  15. HUMAN IMMUNOGLOBULIN G [Concomitant]
     Active Substance: HUMAN IMMUNOGLOBULIN G
     Indication: Neoplasm malignant
  16. VITAMIN D3 [Concomitant]
     Active Substance: CHOLECALCIFEROL
     Indication: Hypovitaminosis
     Dosage: 25 MCG
     Route: 065

REACTIONS (2)
  - Hospitalisation [Not Recovered/Not Resolved]
  - Drug titration error [Unknown]

NARRATIVE: CASE EVENT DATE: 20251101
